FAERS Safety Report 24283829 (Version 2)
Quarter: 2024Q3

REPORT INFORMATION
  Report Type: Spontaneous
  Country: US (occurrence: US)
  Receive Date: 20240905
  Receipt Date: 20240926
  Transmission Date: 20241016
  Serious: Yes (Other)
  Sender: BRISTOL MYERS SQUIBB
  Company Number: US-BRISTOL-MYERS SQUIBB COMPANY-2024-139551

PATIENT
  Age: 75 Year
  Sex: Male
  Weight: 108.41 kg

DRUGS (1)
  1. REVLIMID [Suspect]
     Active Substance: LENALIDOMIDE
     Indication: Plasma cell myeloma
     Dosage: ONCE DAILY FOR 14 DAYS ON THEN 7 DAYS OFF OF EACH 21 DAY CYCLE.
     Route: 048
     Dates: start: 202312

REACTIONS (4)
  - Neuropathy peripheral [Not Recovered/Not Resolved]
  - Off label use [Unknown]
  - Secretion discharge [Recovering/Resolving]
  - Anxiety [Recovering/Resolving]
